FAERS Safety Report 6324452-5 (Version None)
Quarter: 2009Q3

REPORT INFORMATION
  Report Type: 
  Country: None (occurrence: None)
  Receive Date: 20090824
  Receipt Date: 20090511
  Transmission Date: 20100115
  Serious: No
  Sender: FDA-Public Use
  Company Number: US-ABBOTT-09P-163-0573149-00

PATIENT
  Sex: Male
  Weight: 93.07 kg

DRUGS (3)
  1. NIASPAN [Suspect]
     Indication: LIPIDS ABNORMAL
     Route: 048
     Dates: start: 20090301, end: 20090307
  2. NIASPAN [Suspect]
     Route: 048
     Dates: start: 20090308, end: 20090429
  3. ASPIRIN [Concomitant]
     Indication: PROPHYLAXIS
     Route: 048
     Dates: start: 20090301

REACTIONS (6)
  - BLISTER [None]
  - DRUG INEFFECTIVE [None]
  - FLUSHING [None]
  - INSOMNIA [None]
  - RASH GENERALISED [None]
  - URTICARIA [None]
